FAERS Safety Report 14488183 (Version 1)
Quarter: 2018Q1

REPORT INFORMATION
  Report Type: Spontaneous
  Country: FR (occurrence: FR)
  Receive Date: 20180205
  Receipt Date: 20180205
  Transmission Date: 20180509
  Serious: Yes (Hospitalization)
  Sender: FDA-Public Use
  Company Number: FR-ELI_LILLY_AND_COMPANY-FR201802000325

PATIENT
  Age: 67 Year
  Sex: Female

DRUGS (5)
  1. ALIMTA [Suspect]
     Active Substance: PEMETREXED DISODIUM
     Indication: LUNG ADENOCARCINOMA
     Dosage: 820 MG, CYCLICAL
     Route: 042
     Dates: start: 20171019
  2. INNOHEP [Suspect]
     Active Substance: TINZAPARIN SODIUM
     Indication: PHLEBITIS
     Dosage: 10000 IU, DAILY
     Route: 058
     Dates: start: 201707, end: 20171029
  3. AVASTIN [Suspect]
     Active Substance: BEVACIZUMAB
     Indication: LUNG ADENOCARCINOMA
     Dosage: 450 MG, CYCLICAL
     Route: 042
     Dates: start: 20171019, end: 20171019
  4. ACCORD CARBOPLATIN [Suspect]
     Active Substance: CARBOPLATIN
     Indication: LUNG ADENOCARCINOMA
     Dosage: 397 MG, CYCLICAL
     Route: 042
     Dates: start: 20171019
  5. TAHOR [Concomitant]
     Active Substance: ATORVASTATIN CALCIUM
     Indication: PRODUCT USED FOR UNKNOWN INDICATION
     Dosage: 40 MG, DAILY
     Route: 048

REACTIONS (2)
  - Off label use [Unknown]
  - Ischaemic stroke [Recovering/Resolving]

NARRATIVE: CASE EVENT DATE: 20171030
